FAERS Safety Report 4565676-7 (Version None)
Quarter: 2005Q1

REPORT INFORMATION
  Report Type: 
  Country: None (occurrence: None)
  Receive Date: 20050126
  Receipt Date: 20050110
  Transmission Date: 20050727
  Serious: Yes (Other)
  Sender: FDA-Public Use
  Company Number: A03200500101

PATIENT
  Sex: Male

DRUGS (2)
  1. PLAVIX [Suspect]
     Dosage: ORAL
     Route: 048
  2. ASPIRIN [Suspect]

REACTIONS (2)
  - CEREBROVASCULAR ACCIDENT [None]
  - THROMBOSIS [None]
